FAERS Safety Report 21184663 (Version 1)
Quarter: 2022Q3

REPORT INFORMATION
  Report Type: Spontaneous
  Country: US (occurrence: None)
  Receive Date: 20220805
  Receipt Date: 20220805
  Transmission Date: 20221027
  Serious: Yes (Hospitalization)
  Sender: FDA-Public Use
  Company Number: None

PATIENT
  Age: 66 Year
  Sex: Female
  Weight: 103.6 kg

DRUGS (12)
  1. CAPECITABINE [Suspect]
     Active Substance: CAPECITABINE
     Indication: Breast cancer
     Dosage: 2000 MG BID 14ON 7OFF ORAL
     Route: 048
  2. ALPRAZOLAM [Concomitant]
     Active Substance: ALPRAZOLAM
  3. CELEBREX [Concomitant]
     Active Substance: CELECOXIB
  4. DULOXETINE [Concomitant]
     Active Substance: DULOXETINE
  5. ACETAMINOPHEN\HYDROCODONE [Concomitant]
     Active Substance: ACETAMINOPHEN\HYDROCODONE
  6. LAMOTRIGINE [Concomitant]
     Active Substance: LAMOTRIGINE
  7. METFORMIN [Concomitant]
     Active Substance: METFORMIN HYDROCHLORIDE
  8. METHOCARBAMOL [Concomitant]
     Active Substance: METHOCARBAMOL
  9. PREGABALIN [Concomitant]
     Active Substance: PREGABALIN
  10. QUETIAPINE [Concomitant]
     Active Substance: QUETIAPINE
  11. SINGULAIR [Concomitant]
     Active Substance: MONTELUKAST SODIUM
  12. SYNTHROID [Concomitant]
     Active Substance: LEVOTHYROXINE SODIUM

REACTIONS (1)
  - Surgery [None]
